FAERS Safety Report 11867648 (Version 1)
Quarter: 2015Q4

REPORT INFORMATION
  Report Type: Report from Study
  Country: VE (occurrence: VE)
  Receive Date: 20151224
  Receipt Date: 20151224
  Transmission Date: 20160305
  Serious: Yes (Other)
  Sender: FDA-Public Use
  Company Number: VE-ABBVIE-15K-178-1495546-00

PATIENT
  Age: 46 Year
  Weight: 65 kg

DRUGS (1)
  1. HUMIRA [Suspect]
     Active Substance: ADALIMUMAB
     Indication: AXIAL SPONDYLOARTHRITIS
     Route: 058
     Dates: start: 201508, end: 201509

REACTIONS (8)
  - Blindness [Not Recovered/Not Resolved]
  - Feeling abnormal [Unknown]
  - Ulcerative keratitis [Not Recovered/Not Resolved]
  - Dizziness [Unknown]
  - Syncope [Unknown]
  - Headache [Unknown]
  - Malaise [Unknown]
  - Pain [Unknown]

NARRATIVE: CASE EVENT DATE: 2015
